FAERS Safety Report 9564800 (Version 2)
Quarter: 2013Q4

REPORT INFORMATION
  Report Type: Spontaneous
  Country: US (occurrence: US)
  Receive Date: 20130930
  Receipt Date: 20131030
  Transmission Date: 20140711
  Serious: Yes (Hospitalization)
  Sender: FDA-Public Use
  Company Number: US-JNJFOC-20130913406

PATIENT
  Age: 92 Year
  Sex: Male
  Weight: 87.23 kg

DRUGS (16)
  1. ZYTIGA [Suspect]
     Indication: HORMONE-REFRACTORY PROSTATE CANCER
     Dosage: 250MGX4
     Route: 048
     Dates: start: 20130819, end: 20130913
  2. CRESTOR [Concomitant]
     Route: 065
  3. PREDNISONE [Concomitant]
     Route: 065
  4. FLOMAX [Concomitant]
     Route: 065
  5. ALPRAZOLAM [Concomitant]
     Route: 065
  6. BABY ASPIRIN [Concomitant]
     Route: 065
  7. COREG [Concomitant]
     Route: 065
  8. LASIX [Concomitant]
     Route: 065
  9. LISINOPRIL [Concomitant]
     Route: 065
  10. MEGACE [Concomitant]
     Route: 065
  11. BICALUTAMIDE [Concomitant]
     Route: 065
  12. PLAVIX [Concomitant]
     Route: 065
  13. POTASSIUM [Concomitant]
     Route: 065
  14. MUCINEX [Concomitant]
     Route: 065
  15. DUONEB [Concomitant]
     Route: 065
  16. VENTOLIN [Concomitant]
     Dosage: AS NEEDED
     Route: 065

REACTIONS (3)
  - Hypokalaemia [Recovered/Resolved]
  - Orthostatic hypotension [Recovered/Resolved]
  - Respiratory tract congestion [Recovering/Resolving]
